FAERS Safety Report 10921151 (Version 2)
Quarter: 2015Q2

REPORT INFORMATION
  Report Type: Spontaneous
  Country: CA (occurrence: None)
  Receive Date: 20150312
  Receipt Date: 20150406
  Transmission Date: 20150821
  Serious: Yes (Hospitalization, Other)
  Sender: FDA-Public Use
  Company Number: 2014CA0510

PATIENT
  Age: 58 Year
  Sex: Female

DRUGS (10)
  1. SYNTHROID (LEVOTHYRXINE SODIUM) [Concomitant]
  2. BISOPROLOL [Concomitant]
     Active Substance: BISOPROLOL
  3. LASIX [Concomitant]
     Active Substance: FUROSEMIDE
  4. HUMALOG [Concomitant]
     Active Substance: INSULIN LISPRO
  5. LANTUS [Concomitant]
     Active Substance: INSULIN GLARGINE
  6. KINERET [Suspect]
     Active Substance: ANAKINRA
     Indication: RHEUMATOID ARTHRITIS
     Route: 058
     Dates: start: 20030223
  7. PREDNISONE. [Concomitant]
     Active Substance: PREDNISONE
  8. LIPITOR [Concomitant]
     Active Substance: ATORVASTATIN CALCIUM
  9. AMLODIPINE [Concomitant]
     Active Substance: AMLODIPINE BESYLATE
  10. URSODIOL (URSODEOXYCHOLIC ACID) [Concomitant]

REACTIONS (17)
  - Femur fracture [None]
  - Rash [None]
  - Blood bilirubin increased [None]
  - Respiratory distress [None]
  - Petechiae [None]
  - Osteopenia [None]
  - Arthritis [None]
  - Drug dose omission [None]
  - Haemoglobin decreased [None]
  - Oedema peripheral [None]
  - Pneumonia [None]
  - Fall [None]
  - Post procedural pulmonary embolism [None]
  - Joint injury [None]
  - Acute kidney injury [None]
  - Contusion [None]
  - Vascular calcification [None]

NARRATIVE: CASE EVENT DATE: 20141103
